FAERS Safety Report 6231823-4 (Version None)
Quarter: 2009Q2

REPORT INFORMATION
  Report Type: 
  Country: None (occurrence: None)
  Receive Date: 20090611
  Receipt Date: 20090611
  Transmission Date: 20091009
  Serious: Yes (Hospitalization, Other)
  Sender: FDA-Public Use
  Company Number: None

PATIENT
  Sex: Female
  Weight: 70.7611 kg

DRUGS (2)
  1. LEVAQUIN [Suspect]
     Indication: BREAST INFECTION
     Dosage: 1 DAILY PO
     Route: 048
     Dates: start: 20090529, end: 20090601
  2. CEPHALEXIN [Suspect]
     Indication: BREAST INFECTION
     Dosage: 1 THREE TIMES DAILY PO
     Route: 048
     Dates: start: 20090601, end: 20090601

REACTIONS (4)
  - PRURITUS [None]
  - SWELLING [None]
  - TENDON DISORDER [None]
  - URTICARIA [None]
